FAERS Safety Report 23566201 (Version 2)
Quarter: 2024Q2

REPORT INFORMATION
  Report Type: Spontaneous
  Country: US (occurrence: US)
  Receive Date: 20240226
  Receipt Date: 20240404
  Transmission Date: 20240717
  Serious: No
  Sender: FDA-Public Use
  Company Number: US-BRISTOL-MYERS SQUIBB COMPANY-2024-027338

PATIENT
  Age: 67 Year
  Sex: Male

DRUGS (1)
  1. REVLIMID [Suspect]
     Active Substance: LENALIDOMIDE
     Indication: Plasma cell myeloma
     Dosage: FREQUENCY: 1 WHOLE CAPSULE BY MOUTH WITH WATER EVERY DAY FOR 21 DAYS THEN 7 DAYS OFF. DO NOT BREAK,
     Route: 048
     Dates: start: 20220517

REACTIONS (3)
  - Therapy interrupted [Recovered/Resolved]
  - Product prescribing issue [Recovered/Resolved]
  - Insurance issue [Unknown]
